FAERS Safety Report 8122480-0 (Version None)
Quarter: 2012Q1

REPORT INFORMATION
  Report Type: 
  Country: None (occurrence: None)
  Receive Date: 20120208
  Receipt Date: 20110606
  Transmission Date: 20120608
  Serious: No
  Sender: FDA-Public Use
  Company Number: US-ASTRAZENECA-2011SE30945

PATIENT
  Age: 63 Year
  Sex: Female

DRUGS (2)
  1. ACCOLATE [Suspect]
     Route: 048
  2. OXYGEN 24/7 [Concomitant]

REACTIONS (4)
  - DRUG DOSE OMISSION [None]
  - RHINORRHOEA [None]
  - BLISTER [None]
  - MOOD ALTERED [None]
